FAERS Safety Report 7865037-9 (Version None)
Quarter: 2011Q4

REPORT INFORMATION
  Report Type: 
  Country: None (occurrence: None)
  Receive Date: 20111028
  Receipt Date: 20101005
  Transmission Date: 20120403
  Serious: No
  Sender: FDA-Public Use
  Company Number: US-GLAXOSMITHKLINE-A0885011A

PATIENT
  Age: 38 Year
  Sex: Male

DRUGS (3)
  1. ALBUTEROL [Concomitant]
  2. CLOBETASOL [Concomitant]
  3. ADVAIR DISKUS 100/50 [Suspect]
     Indication: ASTHMA
     Dosage: 2PUFF TWICE PER DAY
     Route: 055
     Dates: start: 20050101

REACTIONS (2)
  - INHALATION THERAPY [None]
  - PRODUCT QUALITY ISSUE [None]
